FAERS Safety Report 6137584-1 (Version None)
Quarter: 2009Q1

REPORT INFORMATION
  Report Type: 
  Country: None (occurrence: None)
  Receive Date: 20090327
  Receipt Date: 20090327
  Transmission Date: 20090719
  Serious: Yes (Life-Threatening, Disabling, Other)
  Sender: FDA-Public Use
  Company Number: None

PATIENT
  Age: 17 Year
  Sex: Female
  Weight: 47.6277 kg

DRUGS (2)
  1. AMBIEN [Suspect]
     Indication: INSOMNIA
     Dosage: 1 TB BY MOUTH AT BED TIME AS NEEDED
     Dates: start: 20081010
  2. AMBIEN [Suspect]
     Indication: INSOMNIA
     Dosage: 1 TB BY MOUTH AT BED TIME AS NEEDED
     Dates: start: 20081011

REACTIONS (12)
  - ABNORMAL BEHAVIOUR [None]
  - AGGRESSION [None]
  - DRUG DEPENDENCE [None]
  - DRUG WITHDRAWAL SYNDROME [None]
  - IMMOBILE [None]
  - IRRITABILITY [None]
  - MIGRAINE [None]
  - MOOD ALTERED [None]
  - MOVEMENT DISORDER [None]
  - PARALYSIS [None]
  - PARANOIA [None]
  - VOMITING [None]
